FAERS Safety Report 19295597 (Version 1)
Quarter: 2021Q2

REPORT INFORMATION
  Report Type: Spontaneous
  Country: US (occurrence: US)
  Receive Date: 20210524
  Receipt Date: 20210524
  Transmission Date: 20210717
  Serious: Yes (Other)
  Sender: FDA-Public Use
  Company Number: US-PFIZER INC-2021541776

PATIENT
  Age: 73 Year
  Sex: Female
  Weight: 55.51 kg

DRUGS (2)
  1. IBRANCE [Suspect]
     Active Substance: PALBOCICLIB
     Indication: BREAST CANCER FEMALE
     Dosage: 125 MG, 21 DAYS ON, 7 DAYS OFF
     Route: 048
     Dates: start: 20210510
  2. ASPIRIN [ACETYLSALICYLIC ACID] [Concomitant]
     Active Substance: ASPIRIN

REACTIONS (3)
  - Haematochezia [Unknown]
  - Hypotension [Unknown]
  - Constipation [Unknown]
